FAERS Safety Report 20712702 (Version 2)
Quarter: 2022Q2

REPORT INFORMATION
  Report Type: Report from Study
  Country: US (occurrence: US)
  Receive Date: 20220415
  Receipt Date: 20220425
  Transmission Date: 20220721
  Serious: Yes (Hospitalization)
  Sender: FDA-Public Use
  Company Number: US-GLAXOSMITHKLINE-US2022GSK060074

PATIENT
  Age: 42 Year
  Sex: Female

DRUGS (6)
  1. PANITUMUMAB [Suspect]
     Active Substance: PANITUMUMAB
     Indication: Adenocarcinoma of colon
     Dosage: 130.5 MILLIGRAM, Q2WK
     Route: 042
     Dates: start: 20220317, end: 20220317
  2. PANITUMUMAB [Suspect]
     Active Substance: PANITUMUMAB
     Dosage: 130.5 MILLIGRAM, Q2WK
     Route: 042
     Dates: start: 20220331, end: 20220331
  3. NIRAPARIB [Suspect]
     Active Substance: NIRAPARIB
     Indication: Adenocarcinoma of colon
     Dosage: 300 MILLIGRAM, QD
     Route: 048
     Dates: start: 20220117, end: 20220331
  4. ACETAMINOPHEN\HYDROCODONE [Concomitant]
     Active Substance: ACETAMINOPHEN\HYDROCODONE
     Dosage: UNK
     Dates: start: 20220105
  5. APIXABAN [Concomitant]
     Active Substance: APIXABAN
     Dosage: UNK
     Dates: start: 20220105
  6. ATROPINE [Concomitant]
     Active Substance: ATROPINE
     Dosage: UNK
     Dates: start: 20220105

REACTIONS (1)
  - Haemoglobin decreased [Unknown]

NARRATIVE: CASE EVENT DATE: 20220331
